FAERS Safety Report 8537984-6 (Version None)
Quarter: 2012Q3

REPORT INFORMATION
  Report Type: 
  Country: None (occurrence: None)
  Receive Date: 20120725
  Receipt Date: 20120710
  Transmission Date: 20120928
  Serious: Yes (Death, Other)
  Sender: FDA-Public Use
  Company Number: PHHY2012US059049

PATIENT
  Age: 33 Year
  Sex: Female

DRUGS (7)
  1. FLUDARABINE PHOSPHATE [Suspect]
     Indication: MULTIPLE MYELOMA
     Dosage: UNK
  2. CYCLOSPORINE [Suspect]
     Indication: PROPHYLAXIS
  3. ALEMTUZUMAB [Suspect]
     Indication: MULTIPLE MYELOMA
  4. ALEMTUZUMAB [Suspect]
     Indication: PROPHYLAXIS
  5. CYCLOSPORINE [Suspect]
     Indication: STEM CELL TRANSPLANT
  6. CYCLOSPORINE [Suspect]
     Indication: MULTIPLE MYELOMA
     Dosage: UNK
  7. CYCLOPHOSPHAMIDE [Suspect]
     Indication: MULTIPLE MYELOMA

REACTIONS (21)
  - LARGE INTESTINAL ULCER [None]
  - PYREXIA [None]
  - RETINAL HAEMORRHAGE [None]
  - HYPERBILIRUBINAEMIA [None]
  - ABDOMINAL DISTENSION [None]
  - MENINGITIS [None]
  - MICROSPORIDIA INFECTION [None]
  - ASPARTATE AMINOTRANSFERASE INCREASED [None]
  - HEPATIC ENZYME INCREASED [None]
  - INFLAMMATION [None]
  - MACULE [None]
  - HYDROCEPHALUS [None]
  - DIARRHOEA [None]
  - FUNGAL INFECTION [None]
  - LUNG INFILTRATION [None]
  - DERMAL CYST [None]
  - CHORIORETINITIS [None]
  - PAPULE [None]
  - ENTEROCOCCAL INFECTION [None]
  - RESPIRATORY FAILURE [None]
  - PULMONARY ALVEOLAR HAEMORRHAGE [None]
